FAERS Safety Report 14057131 (Version 4)
Quarter: 2017Q4

REPORT INFORMATION
  Report Type: Spontaneous
  Country: US (occurrence: US)
  Receive Date: 20171006
  Receipt Date: 20171206
  Transmission Date: 20180321
  Serious: Yes (Death, Hospitalization, Other)
  Sender: FDA-Public Use
  Company Number: US-SAOL THERAPEUTICS-2017SAO01543

PATIENT
  Age: 31 Year
  Sex: Male

DRUGS (1)
  1. COMPOUNDED BACLOFEN [Suspect]
     Active Substance: BACLOFEN
     Dosage: 1024.8 ?G, \DAY
     Route: 037

REACTIONS (7)
  - Cardiomegaly [Unknown]
  - Pulmonary oedema [Unknown]
  - Thrombosis [Unknown]
  - Fall [Unknown]
  - Death [Fatal]
  - Unevaluable event [Unknown]
  - Poor quality sleep [Unknown]

NARRATIVE: CASE EVENT DATE: 2008
